FAERS Safety Report 6249448-3 (Version None)
Quarter: 2009Q2

REPORT INFORMATION
  Report Type: 
  Country: None (occurrence: None)
  Receive Date: 20090629
  Receipt Date: 20090622
  Transmission Date: 20091009
  Serious: Yes (Other)
  Sender: FDA-Public Use
  Company Number: A0793085A

PATIENT
  Age: 55 Year
  Sex: Male

DRUGS (4)
  1. LOVAZA [Suspect]
     Dosage: 1CAP TWICE PER DAY
     Route: 048
     Dates: start: 20090129
  2. LEXAPRO [Concomitant]
  3. CLONAZEPAM [Concomitant]
  4. FLUTICASONE PROPIONATE [Concomitant]

REACTIONS (3)
  - GOITRE [None]
  - HYPERTHYROIDISM [None]
  - WEIGHT INCREASED [None]
